FAERS Safety Report 9009755 (Version 1)
Quarter: 2013Q1

REPORT INFORMATION
  Report Type: Spontaneous
  Country: US (occurrence: US)
  Receive Date: 20130110
  Receipt Date: 20130110
  Transmission Date: 20140127
  Serious: Yes (Hospitalization)
  Sender: FDA-Public Use
  Company Number: US-PFIZER INC-2013010160

PATIENT
  Sex: Female
  Weight: 79 kg

DRUGS (4)
  1. NORVASC [Suspect]
     Indication: HYPERTENSION
     Dosage: 5 MG, DAILY
  2. CELEBREX [Suspect]
     Indication: ARTHRITIS
     Dosage: 200 MG, DAILY
  3. NEXIUM [Concomitant]
     Indication: GASTROOESOPHAGEAL REFLUX DISEASE
     Dosage: 40 MG, DAILY (AT NIGHT)
  4. SKELAXIN [Concomitant]
     Indication: MUSCULOSKELETAL DISCOMFORT
     Dosage: 800 MG, DAILY

REACTIONS (2)
  - Back pain [Unknown]
  - Back disorder [Unknown]
